FAERS Safety Report 24574904 (Version 2)
Quarter: 2024Q4

REPORT INFORMATION
  Report Type: Report from Study
  Country: US (occurrence: US)
  Receive Date: 20241104
  Receipt Date: 20241115
  Transmission Date: 20250115
  Serious: Yes (Hospitalization)
  Sender: IMMUNOCORE
  Company Number: US-IMMUNOCORE, LTD-2024-IMC-003313

PATIENT
  Age: 68 Year
  Sex: Female

DRUGS (2)
  1. KIMMTRAK [Suspect]
     Active Substance: TEBENTAFUSP-TEBN
     Indication: Metastatic ocular melanoma
     Dosage: 68 MICROGRAM
  2. KIMMTRAK [Suspect]
     Active Substance: TEBENTAFUSP-TEBN
     Dosage: 68 MICROGRAM
     Dates: start: 20241023, end: 20241023

REACTIONS (5)
  - Abdominal distension [Not Recovered/Not Resolved]
  - Malignant neoplasm progression [Unknown]
  - Abdominal pain [Not Recovered/Not Resolved]
  - Asthenia [Not Recovered/Not Resolved]
  - Product dose omission issue [Unknown]

NARRATIVE: CASE EVENT DATE: 20241028
